FAERS Safety Report 6981872-3 (Version None)
Quarter: 2010Q3

REPORT INFORMATION
  Report Type: 
  Country: None (occurrence: None)
  Receive Date: 20100914
  Receipt Date: 20091102
  Transmission Date: 20110219
  Serious: No
  Sender: FDA-Public Use
  Company Number: US-PFIZER INC-2009292639

PATIENT
  Age: 58 Year
  Sex: Female
  Weight: 63.492 kg

DRUGS (9)
  1. LYRICA [Suspect]
     Indication: FIBROMYALGIA
     Dosage: 225 MG, 2X/DAY
     Dates: start: 20090101
  2. LYRICA [Suspect]
     Dosage: UNK
     Dates: start: 20090101, end: 20090101
  3. LEVOTHYROXINE [Concomitant]
     Indication: HYPOTHYROIDISM
     Dosage: UNK
  4. VOLTAREN [Concomitant]
     Dosage: 75 MG, 2X/DAY
  5. DITROPAN [Concomitant]
     Dosage: 5 MG, 2X/DAY
  6. OMEPRAZOLE [Concomitant]
     Dosage: UNK
  7. FISH OIL [Concomitant]
     Dosage: 1000 MG, 2X/DAY
  8. CALCIUM [Concomitant]
     Dosage: 600 MG, 2X/DAY
  9. ACETYLSALICYLIC ACID [Concomitant]
     Dosage: 81 MG, 1X/DAY

REACTIONS (2)
  - EARLY SATIETY [None]
  - WEIGHT INCREASED [None]
